FAERS Safety Report 6324782-7 (Version None)
Quarter: 2009Q3

REPORT INFORMATION
  Report Type: 
  Country: None (occurrence: None)
  Receive Date: 20090824
  Receipt Date: 20090505
  Transmission Date: 20100115
  Serious: No
  Sender: FDA-Public Use
  Company Number: US-ABBOTT-09P-163-0571614-00

PATIENT
  Sex: Male
  Weight: 87.622 kg

DRUGS (5)
  1. NIASPAN [Suspect]
     Indication: BLOOD CHOLESTEROL INCREASED
     Route: 048
     Dates: start: 20080901, end: 20080901
  2. NIASPAN [Suspect]
     Route: 048
     Dates: start: 20080901, end: 20080901
  3. NIASPAN [Suspect]
     Route: 048
     Dates: start: 20090401
  4. CRESTOR [Concomitant]
     Indication: BLOOD CHOLESTEROL INCREASED
     Route: 048
     Dates: start: 20080101, end: 20090401
  5. CRESTOR [Concomitant]
     Route: 048
     Dates: start: 20090401

REACTIONS (3)
  - PRURITUS [None]
  - RASH [None]
  - RASH MACULAR [None]
